FAERS Safety Report 16431500 (Version 3)
Quarter: 2019Q4

REPORT INFORMATION
  Report Type: Report from Study
  Country: US (occurrence: US)
  Receive Date: 20190614
  Receipt Date: 20191016
  Transmission Date: 20200122
  Serious: Yes (Other)
  Sender: FDA-Public Use
  Company Number: PHEH2019US024755

PATIENT
  Age: 48 Year
  Sex: Female

DRUGS (1)
  1. GILENYA [Suspect]
     Active Substance: FINGOLIMOD HYDROCHLORIDE
     Indication: RELAPSING-REMITTING MULTIPLE SCLEROSIS
     Dosage: 0.5 MG, QD
     Route: 048

REACTIONS (19)
  - Stress [Unknown]
  - Dysgraphia [Unknown]
  - Decreased appetite [Unknown]
  - Mental disorder [Unknown]
  - Blindness [Unknown]
  - Optic neuritis [Unknown]
  - Tinnitus [Unknown]
  - Fatigue [Unknown]
  - Pain in extremity [Unknown]
  - Atrophy [Unknown]
  - Weight decreased [Unknown]
  - Multiple sclerosis relapse [Unknown]
  - Hypotonia [Unknown]
  - Skin laxity [Unknown]
  - Back pain [Unknown]
  - Asthenia [Unknown]
  - Arthralgia [Unknown]
  - Tremor [Unknown]
  - Muscle spasticity [Unknown]

NARRATIVE: CASE EVENT DATE: 20181217
